FAERS Safety Report 6661827-9 (Version None)
Quarter: 2010Q1

REPORT INFORMATION
  Report Type: 
  Country: None (occurrence: None)
  Receive Date: 20100331
  Receipt Date: 20090722
  Transmission Date: 20100710
  Serious: Yes (Other)
  Sender: FDA-Public Use
  Company Number: US-BRISTOL-MYERS SQUIBB COMPANY-14712202

PATIENT

DRUGS (1)
  1. ERBITUX [Suspect]
     Dosage: ALSO TAKEN 100MG LOT#08C00394A

REACTIONS (2)
  - FLUSHING [None]
  - OXYGEN SATURATION DECREASED [None]
